FAERS Safety Report 11087927 (Version 2)
Quarter: 2015Q2

REPORT INFORMATION
  Report Type: Report from Study
  Country: KR (occurrence: KR)
  Receive Date: 20150504
  Receipt Date: 20150505
  Transmission Date: 20150821
  Serious: Yes (Hospitalization)
  Sender: FDA-Public Use
  Company Number: PHHY2015KR049108

PATIENT
  Age: 84 Year
  Sex: Male
  Weight: 48 kg

DRUGS (1)
  1. INDACATEROL [Suspect]
     Active Substance: INDACATEROL
     Indication: CHRONIC OBSTRUCTIVE PULMONARY DISEASE
     Dosage: 150 UG, UNK
     Route: 055
     Dates: start: 20141007

REACTIONS (6)
  - Radiation pneumonitis [Unknown]
  - Concomitant disease aggravated [Unknown]
  - Platelet count increased [Unknown]
  - Dyspnoea [Unknown]
  - Dizziness [Unknown]
  - Red blood cell count decreased [Unknown]

NARRATIVE: CASE EVENT DATE: 20141112
